FAERS Safety Report 19819097 (Version 2)
Quarter: 2021Q3

REPORT INFORMATION
  Report Type: Spontaneous
  Country: CN (occurrence: CN)
  Receive Date: 20210913
  Receipt Date: 20210914
  Transmission Date: 20211014
  Serious: Yes (Hospitalization)
  Sender: FDA-Public Use
  Company Number: CN-JNJFOC-20210910738

PATIENT
  Age: 46 Year
  Sex: Male

DRUGS (6)
  1. VITAMIN C [Suspect]
     Active Substance: ASCORBIC ACID
     Indication: HEADACHE
     Route: 048
  2. VITAMIN C [Suspect]
     Active Substance: ASCORBIC ACID
     Indication: HEAT STROKE
  3. COMPOUND PARACETAMOL AND AMANTADINE HYDROCHLORIDE [AMANTADINE HYDROCHL [Suspect]
     Active Substance: ACETAMINOPHEN\AMANTADINE HYDROCHLORIDE
     Indication: HEAT STROKE
  4. TYLENOL [Suspect]
     Active Substance: ACETAMINOPHEN
     Indication: HEAT STROKE
  5. COMPOUND PARACETAMOL AND AMANTADINE HYDROCHLORIDE [AMANTADINE HYDROCHL [Suspect]
     Active Substance: ACETAMINOPHEN\AMANTADINE HYDROCHLORIDE
     Indication: HEADACHE
     Route: 048
  6. TYLENOL [Suspect]
     Active Substance: ACETAMINOPHEN
     Indication: HEADACHE
     Route: 048

REACTIONS (6)
  - Drug ineffective [Unknown]
  - Discomfort [Unknown]
  - Incorrect dose administered [Unknown]
  - Acute kidney injury [Unknown]
  - Product use issue [Unknown]
  - Pain [Unknown]
